FAERS Safety Report 15963896 (Version 1)
Quarter: 2019Q1

REPORT INFORMATION
  Report Type: Report from Study
  Country: FR (occurrence: FR)
  Receive Date: 20190214
  Receipt Date: 20190214
  Transmission Date: 20190417
  Serious: Yes (Other)
  Sender: FDA-Public Use
  Company Number: FR-TEVA-2019-FR-1010292

PATIENT
  Age: 61 Year
  Sex: Male

DRUGS (3)
  1. BRIMONIDINE [Suspect]
     Active Substance: BRIMONIDINE TARTRATE
     Indication: OPEN ANGLE GLAUCOMA
     Route: 061
  2. DORZOLAMIDE [Suspect]
     Active Substance: DORZOLAMIDE
     Indication: OPEN ANGLE GLAUCOMA
     Route: 061
  3. TRAVOPROST/TIMOLOL [Suspect]
     Active Substance: TIMOLOL\TRAVOPROST
     Indication: OPEN ANGLE GLAUCOMA
     Dosage: ONCE A DAY IN THE RIGHT EYE
     Route: 061

REACTIONS (4)
  - Open angle glaucoma [Recovering/Resolving]
  - Drug ineffective [Unknown]
  - Toxicity to various agents [Recovering/Resolving]
  - Ocular surface disease [Recovering/Resolving]
